FAERS Safety Report 17763701 (Version 1)
Quarter: 2020Q2

REPORT INFORMATION
  Report Type: Spontaneous
  Country: ES (occurrence: ES)
  Receive Date: 20200510
  Receipt Date: 20200510
  Transmission Date: 20200714
  Serious: Yes (Hospitalization)
  Sender: FDA-Public Use
  Company Number: ES-CADILA HEALTHCARE LIMITED-ES-ZYDUS-027342

PATIENT

DRUGS (6)
  1. METFORMIN [Concomitant]
     Active Substance: METFORMIN HYDROCHLORIDE
     Dosage: 1-0-1, 850 COMPRESSED FILMS WITH FILM EFG, 50 TABLETS
     Route: 048
     Dates: start: 20150103
  2. LOSARTAN AND HYDROCHLOROTHIAZIDE [Suspect]
     Active Substance: HYDROCHLOROTHIAZIDE\LOSARTAN POTASSIUM
     Indication: PRODUCT USED FOR UNKNOWN INDICATION
     Dosage: 1 DOSAGE FORM,1-0-0, 50/12.5,(INTERVAL :24 HOURS)
     Route: 048
     Dates: start: 20150103, end: 20170404
  3. OMEPRAZOL [Concomitant]
     Active Substance: OMEPRAZOLE
     Dosage: 1-0-0
     Route: 048
     Dates: start: 20150103
  4. PRAVASTATINA ALTER [Concomitant]
     Dosage: 0-0-1, 10 MG COMPRIMIDOS EFG, 28 TABLETS
     Route: 048
     Dates: start: 20150103
  5. REPAGLINIDE. [Concomitant]
     Active Substance: REPAGLINIDE
     Dosage: 1-0-0
     Route: 048
     Dates: start: 20150103
  6. ADIRO [Concomitant]
     Active Substance: ASPIRIN
     Dosage: 0-1-0
     Route: 048
     Dates: start: 20150103

REACTIONS (1)
  - Inappropriate antidiuretic hormone secretion [Recovered/Resolved]

NARRATIVE: CASE EVENT DATE: 20170404
